FAERS Safety Report 17429745 (Version 1)
Quarter: 2020Q1

REPORT INFORMATION
  Report Type: Spontaneous
  Country: US (occurrence: US)
  Receive Date: 20200203
  Receipt Date: 20200203
  Transmission Date: 20200409
  Serious: Yes (Hospitalization)
  Sender: FDA-Public Use
  Company Number: None

PATIENT
  Age: 73 Year
  Sex: Male
  Weight: 139 kg

DRUGS (1)
  1. METOPROLOL (METOPROLOL TARTRATE 25MG TAB) [Suspect]
     Active Substance: METOPROLOL
     Indication: HYPERTENSION
     Route: 048
     Dates: start: 20110530, end: 20200116

REACTIONS (2)
  - Nodal arrhythmia [None]
  - Bradycardia [None]

NARRATIVE: CASE EVENT DATE: 20200116
